FAERS Safety Report 6936390-5 (Version None)
Quarter: 2010Q3

REPORT INFORMATION
  Report Type: 
  Country: None (occurrence: None)
  Receive Date: 20100817
  Receipt Date: 20100518
  Transmission Date: 20110219
  Serious: No
  Sender: FDA-Public Use
  Company Number: WAES 1005USA02533

PATIENT
  Age: 50 Year
  Sex: Female

DRUGS (5)
  1. ISENTRESS [Suspect]
     Indication: HIV INFECTION
     Dosage: 400 MG/BID/PO
     Route: 048
  2. ACTIVIR [Concomitant]
  3. NORVIR [Concomitant]
  4. REYATAZ [Concomitant]
  5. VIREAD [Concomitant]

REACTIONS (1)
  - HYPOAESTHESIA [None]
